FAERS Safety Report 17388240 (Version 1)
Quarter: 2020Q1

REPORT INFORMATION
  Report Type: Spontaneous
  Country: US (occurrence: US)
  Receive Date: 20200123
  Receipt Date: 20200123
  Transmission Date: 20200409
  Serious: Yes (Hospitalization)
  Sender: FDA-Public Use
  Company Number: None

PATIENT
  Age: 33 Year
  Sex: Female

DRUGS (1)
  1. HUMIRA [Suspect]
     Active Substance: ADALIMUMAB
     Indication: RHEUMATOID ARTHRITIS
     Dosage: ?          OTHER DOSE:1 PEN;OTHER FREQUENCY:Q2WKS;?
     Route: 058
     Dates: start: 20191011

REACTIONS (3)
  - Abortion spontaneous [None]
  - Maternal exposure during pregnancy [None]
  - Foetal exposure during pregnancy [None]

NARRATIVE: CASE EVENT DATE: 201912
